FAERS Safety Report 11203589 (Version 1)
Quarter: 2015Q2

REPORT INFORMATION
  Report Type: Spontaneous
  Country: JP (occurrence: JP)
  Receive Date: 20150619
  Receipt Date: 20150619
  Transmission Date: 20150821
  Serious: Yes (Hospitalization, Other)
  Sender: FDA-Public Use
  Company Number: JP-BAYER-2015-332425

PATIENT
  Sex: Male

DRUGS (3)
  1. BAYASPIRIN [Suspect]
     Active Substance: ASPIRIN
     Indication: CEREBRAL INFARCTION
     Dosage: UNK
     Route: 048
  2. INSULIN [Concomitant]
     Active Substance: INSULIN NOS
     Indication: DIABETES MELLITUS
  3. PLAVIX [Interacting]
     Active Substance: CLOPIDOGREL BISULFATE
     Indication: CEREBRAL INFARCTION
     Dosage: UNK
     Route: 048

REACTIONS (10)
  - Haemothorax [None]
  - Soft tissue haemorrhage [None]
  - Haematocrit decreased [Recovered/Resolved]
  - Subcutaneous haematoma [None]
  - Haemoglobin decreased [Recovered/Resolved]
  - Contusion [None]
  - Labelled drug-drug interaction medication error [None]
  - Blood pressure decreased [None]
  - Peripheral swelling [Recovered/Resolved]
  - Rib fracture [None]
